FAERS Safety Report 15952102 (Version 2)
Quarter: 2019Q3

REPORT INFORMATION
  Report Type: Report from Study
  Country: FR (occurrence: FR)
  Receive Date: 20190211
  Receipt Date: 20190917
  Transmission Date: 20191004
  Serious: Yes (Death)
  Sender: FDA-Public Use
  Company Number: FR-PFIZER INC-2015327743

PATIENT

DRUGS (4)
  1. FLUOROURACIL. [Suspect]
     Active Substance: FLUOROURACIL
     Indication: COLORECTAL CANCER METASTATIC
     Dosage: 3000 MG/M2/46H, CYCLIC ONCE EVERY TWO WEEKS, INDUCTION THERAPY (6 CYCLES)
     Route: 042
  2. FOLINIC ACID [Suspect]
     Active Substance: LEUCOVORIN
     Indication: COLORECTAL CANCER METASTATIC
     Dosage: 400 MG/M2, CYCLIC, ONCE EVERY TWO WEEKS, INDUCTION THERAPY (6 CYCLES)
     Route: 042
  3. AFLIBERCEPT [Suspect]
     Active Substance: AFLIBERCEPT
     Indication: COLORECTAL CANCER METASTATIC
     Dosage: 4 MG/KG, CYCLIC, ONCE EVERY TWO WEEKS, INDUCTION THERAPY (6 CYCLES)
     Route: 042
  4. OXALIPLATIN. [Suspect]
     Active Substance: OXALIPLATIN
     Indication: COLORECTAL CANCER METASTATIC
     Dosage: 100 MG/M2, CYCLIC, ONCE EVERY TWO WEEKS, INDUCTION THERAPY (6 CYCLES)
     Route: 042

REACTIONS (1)
  - Cerebrovascular accident [Fatal]
